FAERS Safety Report 10203109 (Version 2)
Quarter: 2014Q2

REPORT INFORMATION
  Report Type: Report from Study
  Country: US (occurrence: US)
  Receive Date: 20140529
  Receipt Date: 20140619
  Transmission Date: 20141212
  Serious: Yes (Hospitalization)
  Sender: FDA-Public Use
  Company Number: US-AMGEN-USACT2014038614

PATIENT
  Age: 7 Year
  Sex: Female
  Weight: 22.8 kg

DRUGS (12)
  1. ROMIPLOSTIM [Suspect]
     Indication: IMMUNE THROMBOCYTOPENIC PURPURA
     Dosage: 9 MUG, QWK
     Route: 058
     Dates: start: 20140311
  2. BENADRYL ALLERGY                   /00000402/ [Concomitant]
     Indication: HYPERSENSITIVITY
     Dosage: 5 ML OR 12.5 MG, Q6H, PRN
     Route: 048
  3. BENADRYL ALLERGY                   /00000402/ [Concomitant]
     Indication: NASAL CONGESTION
  4. CETRIZINE [Concomitant]
     Dosage: 1 MG/ML, 5 ML, QD
     Route: 048
  5. CODEINE [Concomitant]
     Dosage: 10 MG, UNK
  6. GUAIFENESIN [Concomitant]
     Indication: COUGH
     Dosage: 100 MG/5 ML, TOOK 2.5 ML Q6H , PRN
  7. BACTRIM [Concomitant]
     Indication: LIMB INJURY
     Dosage: 2 %, UNK
  8. MULTIVITAMIN                       /00097801/ [Concomitant]
     Dosage: 1 UNK, UNK
  9. TYLENOL                            /00020001/ [Concomitant]
     Indication: HEADACHE
  10. HYDROXIZINE [Concomitant]
     Indication: HEADACHE
  11. HYDROCODONE                        /00060002/ [Concomitant]
     Indication: HEADACHE
  12. ZANTAC [Concomitant]

REACTIONS (1)
  - Thrombocytopenia [Recovered/Resolved]
